FAERS Safety Report 4893148-9 (Version None)
Quarter: 2005Q4

REPORT INFORMATION
  Report Type: 
  Country: None (occurrence: None)
  Receive Date: 20051223
  Receipt Date: 20051004
  Transmission Date: 20060501
  Serious: Yes (Hospitalization)
  Sender: FDA-Public Use
  Company Number: PHEH2005US11026

PATIENT
  Age: 30 Year
  Sex: Male

DRUGS (3)
  1. CLOZARIL [Suspect]
     Indication: SCHIZOAFFECTIVE DISORDER
     Dosage: 250 MG, QD, ORAL
     Route: 048
  2. LAMICTAL [Concomitant]
  3. EFFEXOR [Concomitant]

REACTIONS (3)
  - CONVULSION [None]
  - LEUKOCYTOSIS [None]
  - NEUTROPHIL COUNT ABNORMAL [None]
